FAERS Safety Report 7355958-8 (Version None)
Quarter: 2011Q1

REPORT INFORMATION
  Report Type: 
  Country: None (occurrence: None)
  Receive Date: 20110316
  Receipt Date: 20110301
  Transmission Date: 20110831
  Serious: Yes (Death)
  Sender: FDA-Public Use
  Company Number: US-BRACCO-005729

PATIENT
  Sex: Male
  Weight: 86 kg

DRUGS (19)
  1. MULTIHANCE [Suspect]
     Indication: NUCLEAR MAGNETIC RESONANCE IMAGING
     Dosage: GIVEN AT 18:45
     Route: 040
     Dates: start: 20101215, end: 20101215
  2. SIMVASTATIN [Concomitant]
     Route: 048
  3. MULTIHANCE [Suspect]
     Indication: AORTIC DISSECTION
     Dosage: GIVEN AT 18:45
     Route: 040
     Dates: start: 20101215, end: 20101215
  4. FENTANYL CITRATE [Concomitant]
     Dosage: IV BOLUS GIVEN OVER 3 MINUTES
     Route: 042
     Dates: start: 20101215, end: 20101215
  5. ETOMIDATE [Concomitant]
     Dosage: USE FOR INTUBATION. GIVEN AT 19:59
     Route: 042
     Dates: start: 20101215, end: 20101215
  6. MULTIHANCE [Suspect]
     Indication: ANGIOGRAM
     Dosage: GIVEN AT 18:45
     Route: 040
     Dates: start: 20101215, end: 20101215
  7. NASONEX [Concomitant]
     Dosage: 50 MICROGRAMS PER SPRAY:  2 SPRAYS INTO BOTH NOSTRILS DAILY
     Route: 045
  8. CLARITIN [Concomitant]
     Route: 048
  9. LISINOPRIL [Concomitant]
     Route: 048
  10. ASPIRIN [Concomitant]
     Dosage: GIVEN AT 11:01
     Route: 048
     Dates: start: 20101215, end: 20101215
  11. BENZONATATE [Concomitant]
     Indication: COUGH
     Dosage: 1 CAPSULE (100 MG) BY ORAL ROUTE 3X PER DAY AS NEEDED FOR COUGH
     Route: 048
  12. PROMETHAZINE W/ CODEINE [Concomitant]
     Indication: COUGH
     Dosage: 6.25-10 MG/5ML, TAKE 1 TSP (5ML) BY MOUTH EVERY 4 HRS IF NEEDED TO RELIEVE COUGHING
     Route: 048
  13. SUCCINYLCHOLINE [Concomitant]
     Indication: ENDOTRACHEAL INTUBATION
     Dosage: 19:50
     Route: 040
     Dates: start: 20101215, end: 20101215
  14. AZITHROMYCIN [Concomitant]
     Dosage: TAKE 2 TABLETS BY MOUTH NOW,THEN TAKE 1 TAB BY MOUTH ONCE EVERY DAY STARTING TOMORROW FOR 4 DAYS
     Route: 048
  15. ASPIRIN [Concomitant]
     Route: 048
     Dates: end: 20101215
  16. ANALGESICS [Concomitant]
     Dates: start: 20101215, end: 20101215
  17. SENNA [Concomitant]
     Indication: CONSTIPATION
     Dosage: 8.6-50 MG TAB, TAKE 2 TABS PO,ONCE OR TWICE/DAY W/ A FULL GLASS OF WATER,DC IF LOOSE STOOLS DEVELOPS
     Route: 048
  18. NITRO-BID [Concomitant]
     Dosage: ONE INCH TO CHEST WALL AT 11:01
     Route: 061
     Dates: start: 20101215, end: 20101215
  19. LOVENOX [Concomitant]
     Dosage: AT 14:29
     Route: 058
     Dates: start: 20101215, end: 20101215

REACTIONS (4)
  - ACUTE PULMONARY OEDEMA [None]
  - ANAPHYLACTOID REACTION [None]
  - CHEST PAIN [None]
  - CARDIAC ARREST [None]
